FAERS Safety Report 8428229-6 (Version None)
Quarter: 2012Q2

REPORT INFORMATION
  Report Type: 
  Country: None (occurrence: None)
  Receive Date: 20120611
  Receipt Date: 20120606
  Transmission Date: 20120825
  Serious: Yes (Other)
  Sender: FDA-Public Use
  Company Number: PHHY2012IN048518

PATIENT
  Age: 28 Year
  Sex: Male

DRUGS (4)
  1. RIFAMPICIN [Suspect]
  2. ISONIAZID [Suspect]
     Indication: TUBERCULOSIS
  3. ETHAMBUTOL HYDROCHLORIDE [Suspect]
     Indication: TUBERCULOSIS
  4. PYRAZINAMIDE [Suspect]
     Indication: TUBERCULOSIS

REACTIONS (14)
  - RASH ERYTHEMATOUS [None]
  - OCULAR HYPERAEMIA [None]
  - SARCOIDOSIS [None]
  - EXFOLIATIVE RASH [None]
  - GRANULOMA SKIN [None]
  - SKIN LESION [None]
  - EYE PAIN [None]
  - RASH MACULO-PAPULAR [None]
  - SKIN MASS [None]
  - UVEITIS [None]
  - SKIN PLAQUE [None]
  - RASH GENERALISED [None]
  - SKIN HYPERPIGMENTATION [None]
  - SPLENOMEGALY [None]
